FAERS Safety Report 13745748 (Version 1)
Quarter: 2017Q3

REPORT INFORMATION
  Report Type: Spontaneous
  Country: CN (occurrence: CN)
  Receive Date: 20170712
  Receipt Date: 20170712
  Transmission Date: 20171127
  Serious: Yes (Hospitalization, Other)
  Sender: FDA-Public Use
  Company Number: CN-PFIZER INC-2017296397

PATIENT
  Age: 15 Year
  Sex: Male
  Weight: 57.7 kg

DRUGS (10)
  1. COMPOUND AMINOPHENAZONE AND BARBITAL INJECTION [Suspect]
     Active Substance: AMINOPHENAZONE\ANTIPYRINE\BARBITAL
     Indication: LUNG INFECTION
  2. PIPERACILLIN SODIUM AND SULBACTAM SODIUM INJECTION [Suspect]
     Active Substance: PIPERACILLIN SODIUM\SULBACTAM SODIUM
     Indication: PYREXIA
     Dosage: 3.75 G, 2X/DAY
     Route: 041
     Dates: start: 20170417, end: 20170418
  3. SODIUM CHLORIDE. [Concomitant]
     Active Substance: SODIUM CHLORIDE
     Indication: LUNG INFECTION
     Dosage: 100 ML, 1X/DAY
     Route: 041
     Dates: start: 20170417, end: 20170418
  4. CELEBREX [Suspect]
     Active Substance: CELECOXIB
     Indication: LUNG INFECTION
  5. PIPERACILLIN SODIUM AND SULBACTAM SODIUM INJECTION [Suspect]
     Active Substance: PIPERACILLIN SODIUM\SULBACTAM SODIUM
     Indication: LUNG INFECTION
  6. KAIFEN (AMBROXOL HYDROCHLORIDE) [Suspect]
     Active Substance: AMBROXOL HYDROCHLORIDE
     Indication: LUNG INFECTION
  7. CELEBREX [Suspect]
     Active Substance: CELECOXIB
     Indication: PYREXIA
     Dosage: 200 MG, 1X/DAY
     Route: 048
     Dates: start: 20170417, end: 20170417
  8. COMPOUND AMINOPHENAZONE AND BARBITAL INJECTION [Suspect]
     Active Substance: AMINOPHENAZONE\ANTIPYRINE\BARBITAL
     Indication: PYREXIA
     Dosage: 2 ML, 1X/DAY
     Route: 041
     Dates: start: 20170417, end: 20170417
  9. KAIFEN (AMBROXOL HYDROCHLORIDE) [Suspect]
     Active Substance: AMBROXOL HYDROCHLORIDE
     Indication: PYREXIA
     Dosage: 30 MG, 1X/DAY
     Route: 041
     Dates: start: 20170417, end: 20170418
  10. SODIUM CHLORIDE. [Concomitant]
     Active Substance: SODIUM CHLORIDE
     Indication: PYREXIA
     Dosage: 100 ML, 2X/DAY
     Route: 041
     Dates: start: 20170417, end: 20170418

REACTIONS (2)
  - Conjunctivitis [Recovering/Resolving]
  - Rash [Recovering/Resolving]

NARRATIVE: CASE EVENT DATE: 20170417
